FAERS Safety Report 7994750-8 (Version None)
Quarter: 2011Q4

REPORT INFORMATION
  Report Type: 
  Country: None (occurrence: None)
  Receive Date: 20111220
  Receipt Date: 20111214
  Transmission Date: 20120403
  Serious: Yes (Hospitalization)
  Sender: FDA-Public Use
  Company Number: BR-BIOMARINP-002174

PATIENT
  Sex: Male

DRUGS (1)
  1. NAGLAZYME [Suspect]
     Indication: MUCOPOLYSACCHARIDOSIS VI
     Route: 065
     Dates: start: 20080505

REACTIONS (3)
  - TRACHEAL OEDEMA [None]
  - SLEEP APNOEA SYNDROME [None]
  - TRACHEOMALACIA [None]
